FAERS Safety Report 23157657 (Version 4)
Quarter: 2023Q4

REPORT INFORMATION
  Report Type: Spontaneous
  Country: CL (occurrence: CL)
  Receive Date: 20231108
  Receipt Date: 20231227
  Transmission Date: 20240110
  Serious: Yes (Other)
  Sender: FDA-Public Use
  Company Number: CL-002147023-NVSC2023CL214882

PATIENT
  Age: 55 Year
  Sex: Female

DRUGS (6)
  1. FULVESTRANT [Suspect]
     Active Substance: FULVESTRANT
     Indication: Product used for unknown indication
     Dosage: UNK, QMO INJECTION NOT OTHERWISE SPECIFIED
     Route: 065
  2. KISQALI [Suspect]
     Active Substance: RIBOCICLIB
     Indication: Breast cancer
     Dosage: 600 MG, QD (3 X 200MG) FOR 21 DAYS (PREFERABLY IN THE MORNING)
     Route: 048
  3. LETROZOLE [Suspect]
     Active Substance: LETROZOLE
     Indication: Product used for unknown indication
     Dosage: UNK
     Route: 065
  4. ALOPEK [Concomitant]
     Indication: Product used for unknown indication
     Dosage: UNK, Q12H (SPRAY, 1 APPLICATION (5%))
     Route: 065
  5. CALCIUM [Concomitant]
     Active Substance: CALCIUM
     Indication: Product used for unknown indication
     Dosage: UNK (STARTED MANY YEARS AGO)
     Route: 065
  6. CALCIUM CARBONATE\CHOLECALCIFEROL [Concomitant]
     Active Substance: CALCIUM CARBONATE\CHOLECALCIFEROL
     Indication: Product used for unknown indication
     Dosage: 1 DOSAGE FORM, Q24H
     Route: 048

REACTIONS (15)
  - Metastases to breast [Unknown]
  - Breast cancer recurrent [Not Recovered/Not Resolved]
  - Hepatic lesion [Unknown]
  - Abdominal pain [Recovered/Resolved]
  - Alopecia [Not Recovered/Not Resolved]
  - Immunodeficiency [Unknown]
  - Mucosal inflammation [Recovering/Resolving]
  - International normalised ratio abnormal [Unknown]
  - Blood lactate dehydrogenase abnormal [Unknown]
  - Neutrophil count decreased [Unknown]
  - Haemoglobin decreased [Unknown]
  - White blood cell count decreased [Unknown]
  - Mean cell volume decreased [Unknown]
  - Arteriosclerosis [Unknown]
  - Fracture [Unknown]

NARRATIVE: CASE EVENT DATE: 20230409
